FAERS Safety Report 9281132 (Version 1)
Quarter: 2013Q2

REPORT INFORMATION
  Report Type: Spontaneous
  Country: US (occurrence: US)
  Receive Date: 20130509
  Receipt Date: 20130509
  Transmission Date: 20140414
  Serious: Yes (Other)
  Sender: FDA-Public Use
  Company Number: US-JNJFOC-20130417568

PATIENT
  Sex: Male
  Weight: 117.94 kg

DRUGS (8)
  1. TOPAMAX [Suspect]
     Indication: PAIN
     Route: 048
  2. LYRICA [Suspect]
     Indication: MIGRAINE
     Route: 065
  3. LYRICA [Suspect]
     Indication: MIGRAINE
     Route: 065
  4. LYRICA [Suspect]
     Indication: MIGRAINE
     Route: 065
  5. LYRICA [Suspect]
     Indication: MIGRAINE
     Route: 065
  6. LYRICA [Suspect]
     Indication: MIGRAINE
     Route: 065
  7. LYRICA [Suspect]
     Indication: MIGRAINE
     Route: 065
  8. LYRICA [Suspect]
     Indication: MIGRAINE
     Route: 065

REACTIONS (11)
  - Dysstasia [Unknown]
  - Hypokinesia [Unknown]
  - Drug ineffective [Unknown]
  - Withdrawal syndrome [Unknown]
  - Weight increased [Unknown]
  - Tremor [Unknown]
  - Off label use [Unknown]
  - Somnolence [Unknown]
  - Nausea [Recovering/Resolving]
  - Vertigo [Recovering/Resolving]
  - Unevaluable event [Unknown]
